FAERS Safety Report 12969393 (Version 3)
Quarter: 2017Q1

REPORT INFORMATION
  Report Type: Report from Study
  Country: US (occurrence: US)
  Receive Date: 20161123
  Receipt Date: 20170216
  Transmission Date: 20170428
  Serious: Yes (Hospitalization)
  Sender: FDA-Public Use
  Company Number: US-PFIZER INC-2016512370

PATIENT
  Age: 65 Year
  Sex: Female
  Weight: 44 kg

DRUGS (30)
  1. MIRALAX [Concomitant]
     Active Substance: POLYETHYLENE GLYCOL 3350
     Dosage: UNK
     Dates: start: 20160816
  2. CALCIUM FOLINATE [Suspect]
     Active Substance: LEUCOVORIN CALCIUM
     Indication: NEOPLASM
     Dosage: 400 MG/M2, CYCLIC (ON DAY ONE OF A 14 DAY CYCLE)
     Route: 042
     Dates: start: 20160906, end: 20160906
  3. FLUOROURACIL. [Suspect]
     Active Substance: FLUOROURACIL
     Dosage: 320 MG/M2, CYCLIC (ON DAY ONE OF A 14 DAY CYCLE)
     Route: 040
     Dates: start: 20160927, end: 20160927
  4. LEVOTHROID [Concomitant]
     Active Substance: LEVOTHYROXINE SODIUM
     Dosage: UNK
     Dates: start: 20060101
  5. ZOFRAN [Concomitant]
     Active Substance: ONDANSETRON HYDROCHLORIDE
     Dosage: UNK
     Dates: start: 20160819
  6. FLUOROURACIL. [Suspect]
     Active Substance: FLUOROURACIL
     Dosage: 4600 MG/M2, CYCLIC (ON DAY ONE OF A 14 DAY CYCLE)
     Route: 042
     Dates: start: 20160906, end: 20160908
  7. FLUOROURACIL. [Suspect]
     Active Substance: FLUOROURACIL
     Dosage: 1920 MG/M2, CYCLIC (ON DAY ONE OF A 14 DAY CYCLE)
     Route: 042
     Dates: start: 20161011, end: 20161011
  8. FLUOROURACIL. [Suspect]
     Active Substance: FLUOROURACIL
     Dosage: UNK
     Dates: end: 20161101
  9. TUMS 500 CALCIUM [Concomitant]
     Dosage: UNK
     Dates: start: 20160701
  10. CALCIUM FOLINATE [Suspect]
     Active Substance: LEUCOVORIN CALCIUM
     Dosage: 400 MG/M2, CYCLIC (ON DAY ONE OF A 14 DAY CYCLE)
     Route: 042
     Dates: start: 20160927, end: 20160927
  11. FLUOROURACIL. [Suspect]
     Active Substance: FLUOROURACIL
     Dosage: 1920 MG/M2, CYCLIC (ON DAY ONE OF A 14 DAY CYCLE)
     Route: 042
     Dates: start: 20160927, end: 20160927
  12. PREXASERTIB [Suspect]
     Active Substance: PREXASERTIB
     Dosage: 40 MG/M2, CYCLIC (ON DAY THREE OF A 14 DAY CYCLE)
     Route: 042
     Dates: start: 20161011, end: 20161013
  13. PREXASERTIB [Suspect]
     Active Substance: PREXASERTIB
     Dosage: UNK
     Dates: end: 20161103
  14. SENOKOT [Concomitant]
     Active Substance: SENNOSIDES
     Dosage: UNK
     Dates: start: 20160819
  15. ZINC SULFATE [Concomitant]
     Active Substance: ZINC SULFATE\ZINC SULFATE ANHYDROUS
     Dosage: UNK
     Dates: start: 20160819
  16. CALCIUM FOLINATE [Suspect]
     Active Substance: LEUCOVORIN CALCIUM
     Dosage: 400 MG/M2, CYCLIC (ON DAY ONE OF A 14 DAY CYCLE)
     Route: 042
     Dates: start: 20161011, end: 20161011
  17. FLUOROURACIL. [Suspect]
     Active Substance: FLUOROURACIL
     Indication: NEOPLASM
     Dosage: 400 MG/M2, CYCLIC (ON DAY ONE OF A 14 DAY CYCLE)
     Route: 040
     Dates: start: 20160906, end: 20160908
  18. FLUOROURACIL. [Suspect]
     Active Substance: FLUOROURACIL
     Dosage: 320 MG/M2, CYCLIC (ON DAY ONE OF A 14 DAY CYCLE)
     Route: 040
     Dates: start: 20161011, end: 20161011
  19. MORPHINE [Concomitant]
     Active Substance: MORPHINE
     Dosage: UNK
     Dates: start: 20160819
  20. GLYCOLAX [Concomitant]
     Active Substance: POLYETHYLENE GLYCOL 3350
     Dosage: UNK
     Dates: start: 20160819
  21. BIO-VITAMIN D3 [Concomitant]
     Dosage: UNK
     Dates: start: 20160701
  22. REMERON [Concomitant]
     Active Substance: MIRTAZAPINE
     Dosage: UNK
     Dates: start: 20160819
  23. APO-FOLIC ACID [Concomitant]
     Active Substance: FOLIC ACID
     Dosage: UNK
     Dates: start: 20150401
  24. PREXASERTIB [Suspect]
     Active Substance: PREXASERTIB
     Dosage: 40 MG/M2, CYCLIC (ON DAY THREE OF A 14 DAY CYCLE)
     Route: 042
     Dates: start: 20160927, end: 20160929
  25. DEXAMETHASONE. [Concomitant]
     Active Substance: DEXAMETHASONE
  26. SANACTASE [Concomitant]
     Dosage: UNK
     Dates: start: 20160819
  27. CALCIUM FOLINATE [Suspect]
     Active Substance: LEUCOVORIN CALCIUM
     Dosage: UNK
     Dates: end: 20161101
  28. PREXASERTIB [Suspect]
     Active Substance: PREXASERTIB
     Indication: NEOPLASM
     Dosage: 50 MG/M2, CYCLIC (ON DAY THREE OF A 14 DAY CYCLE)
     Route: 042
     Dates: start: 20160908, end: 20160908
  29. LOVENOX [Concomitant]
     Active Substance: ENOXAPARIN SODIUM
     Dosage: UNK
     Dates: start: 20160816
  30. LISINOPRIL. [Concomitant]
     Active Substance: LISINOPRIL
     Dosage: UNK
     Dates: start: 20160101

REACTIONS (8)
  - Fatigue [Recovered/Resolved]
  - Nausea [Recovered/Resolved]
  - Gait disturbance [Not Recovered/Not Resolved]
  - Gait disturbance [Recovering/Resolving]
  - Neutropenia [Recovered/Resolved]
  - Confusional state [Recovered/Resolved]
  - Neutropenia [Recovered/Resolved]
  - Vomiting [Recovered/Resolved]

NARRATIVE: CASE EVENT DATE: 20160910
